FAERS Safety Report 20016392 (Version 1)
Quarter: 2021Q4

REPORT INFORMATION
  Report Type: Spontaneous
  Country: US (occurrence: None)
  Receive Date: 20211103
  Receipt Date: 20211103
  Transmission Date: 20220304
  Serious: No
  Sender: FDA-Public Use
  Company Number: None

PATIENT
  Sex: Male

DRUGS (1)
  1. HUMIRA [Suspect]
     Active Substance: ADALIMUMAB
     Indication: Rheumatoid arthritis
     Dosage: FREQUENCY : EVERY OTHER WEEK;?OTHER ROUTE : UNDER THE SKIN;?
     Route: 050
     Dates: start: 201903

REACTIONS (5)
  - Joint swelling [None]
  - Joint swelling [None]
  - Arthralgia [None]
  - Pain in extremity [None]
  - Therapeutic product effect decreased [None]
